FAERS Safety Report 6328145-X (Version None)
Quarter: 2009Q3

REPORT INFORMATION
  Report Type: 
  Country: None (occurrence: None)
  Receive Date: 20090825
  Receipt Date: 20081202
  Transmission Date: 20100115
  Serious: No
  Sender: FDA-Public Use
  Company Number: US-ABBOTT-08P-163-0490963-00

PATIENT
  Sex: Male

DRUGS (2)
  1. SYNTHROID [Suspect]
     Indication: DRUG USE FOR UNKNOWN INDICATION
     Route: 048
  2. NEW BLOOD PRESSURE MEDICATION [Suspect]
     Indication: BLOOD PRESSURE
     Route: 048

REACTIONS (2)
  - FATIGUE [None]
  - TACHYCARDIA [None]
